FAERS Safety Report 4630288-3 (Version None)
Quarter: 2005Q2

REPORT INFORMATION
  Report Type: 
  Country: None (occurrence: None)
  Receive Date: 20050407
  Receipt Date: 20050328
  Transmission Date: 20051028
  Serious: Yes (Hospitalization, Other)
  Sender: FDA-Public Use
  Company Number: 04-000043

PATIENT
  Age: 6 Year
  Sex: Female
  Weight: 22 kg

DRUGS (1)
  1. PHENAZOPYRIDINE HCL TAB [Suspect]
     Indication: DYSURIA
     Dosage: 200 MG, TID, ORAL
     Route: 048
     Dates: start: 20040103, end: 20040114

REACTIONS (5)
  - ACCIDENTAL OVERDOSE [None]
  - HAEMATOCRIT DECREASED [None]
  - HAEMOLYTIC ANAEMIA [None]
  - MEDICATION ERROR [None]
  - OXYGEN SATURATION DECREASED [None]
